FAERS Safety Report 15675504 (Version 3)
Quarter: 2022Q3

REPORT INFORMATION
  Report Type: Spontaneous
  Country: DE (occurrence: DE)
  Receive Date: 20181130
  Receipt Date: 20220905
  Transmission Date: 20221026
  Serious: Yes (Hospitalization, Other)
  Sender: FDA-Public Use
  Company Number: DE-TEVA-2018-DE-980304

PATIENT
  Age: 7 Decade
  Sex: Male

DRUGS (24)
  1. VALSARTAN [Suspect]
     Active Substance: VALSARTAN
     Indication: Hypertension
     Dosage: 80 MILLIGRAM DAILY; START OF THERAPY WITH 1 TABLET DAILY, THEN INCREASED TO 2 TABLETS DAILY.
     Route: 048
     Dates: start: 20150805
  2. VALSARTAN [Suspect]
     Active Substance: VALSARTAN
     Dosage: 240 MILLIGRAM DAILY;
     Route: 048
     Dates: start: 201712, end: 20180530
  3. VALSARTAN [Suspect]
     Active Substance: VALSARTAN
     Dosage: 160 MILLIGRAM DAILY;
     Route: 048
  4. VALSARTAN [Suspect]
     Active Substance: VALSARTAN
     Indication: Hypertension
     Route: 048
     Dates: start: 20180710
  5. VALSARTAN [Suspect]
     Active Substance: VALSARTAN
     Indication: Hypertension
     Route: 048
     Dates: start: 20180810, end: 20180907
  6. BISOPROLOL [Concomitant]
     Active Substance: BISOPROLOL
     Indication: Product used for unknown indication
     Dosage: INTAKE CYCLICAL
     Route: 048
     Dates: start: 20150105
  7. PANTOPRAZOLE SODIUM [Concomitant]
     Active Substance: PANTOPRAZOLE SODIUM
     Indication: Product used for unknown indication
     Dosage: INTAKE CYCLICAL
     Route: 048
     Dates: start: 20150903
  8. Ramilich comp.2.5 mg/12.5 mg [Concomitant]
     Indication: Product used for unknown indication
     Dates: start: 20150105
  9. Ciloxan 3mg/ml [Concomitant]
     Indication: Product used for unknown indication
     Dates: start: 20160713, end: 2016
  10. ASS 100 1 A Pharma [Concomitant]
     Indication: Product used for unknown indication
     Dates: start: 20170524
  11. Opipram 50 mg [Concomitant]
     Indication: Product used for unknown indication
     Dates: start: 20170524
  12. SULFAMETHOXAZOLE\TRIMETHOPRIM [Concomitant]
     Active Substance: SULFAMETHOXAZOLE\TRIMETHOPRIM
     Indication: Product used for unknown indication
     Dates: start: 20170812
  13. ELIQUIS [Concomitant]
     Active Substance: APIXABAN
     Indication: Product used for unknown indication
     Dates: start: 20180116
  14. MULTAQ [Concomitant]
     Active Substance: DRONEDARONE
     Indication: Product used for unknown indication
     Dates: start: 20180116
  15. AMOXICILLIN\CLAVULANIC ACID [Concomitant]
     Active Substance: AMOXICILLIN\CLAVULANIC ACID
     Indication: Product used for unknown indication
     Dates: start: 20180130
  16. Torasemid Hexal 5 mg [Concomitant]
     Indication: Product used for unknown indication
     Dates: start: 20180202
  17. Amlodipin fair-med 5 mg [Concomitant]
     Indication: Product used for unknown indication
     Dates: start: 20180227
  18. NITROLINGUAL [Concomitant]
     Active Substance: NITROGLYCERIN
     Indication: Product used for unknown indication
     Dates: start: 20180322
  19. METAMIZOLE [Concomitant]
     Active Substance: METAMIZOLE
     Indication: Product used for unknown indication
     Dates: start: 20180426
  20. Aciclostad 800 [Concomitant]
     Indication: Product used for unknown indication
     Dates: start: 20180426
  21. POLIDOCANOL [Concomitant]
     Active Substance: POLIDOCANOL
     Indication: Product used for unknown indication
     Dates: start: 20180426
  22. PVP Jod Salbe [Concomitant]
     Indication: Product used for unknown indication
     Dates: start: 20180508
  23. HOMEOPATHICS [Concomitant]
     Active Substance: HOMEOPATHICS
     Indication: Product used for unknown indication
     Dates: start: 20180508
  24. Tilidin AL comp 100 mg / 8 mg [Concomitant]
     Indication: Product used for unknown indication
     Dates: start: 20180530

REACTIONS (30)
  - B-cell lymphoma [Unknown]
  - Squamous cell carcinoma [Unknown]
  - Splenic marginal zone lymphoma stage IV [Unknown]
  - Atrial fibrillation [Recovered/Resolved]
  - Retinopathy hypertensive [Unknown]
  - Arrhythmia [Recovered/Resolved]
  - Cellulitis [Unknown]
  - Cataract [Unknown]
  - Pyrexia [Recovered/Resolved]
  - Immunodeficiency common variable [Unknown]
  - Herpes zoster [Unknown]
  - Cholangitis [Unknown]
  - Pancreatitis [Unknown]
  - Skin neoplasm excision [Unknown]
  - Blepharochalasis [Unknown]
  - Lacrimation decreased [Unknown]
  - Pinguecula [Unknown]
  - Presbyopia [Unknown]
  - Post herpetic neuralgia [Unknown]
  - General physical health deterioration [Unknown]
  - Mental disorder [Unknown]
  - Product impurity [Unknown]
  - Pain [Unknown]
  - Erythema [Unknown]
  - Swelling [Unknown]
  - Gait disturbance [Unknown]
  - Peripheral venous disease [Unknown]
  - Varicose vein [Unknown]
  - Tooth disorder [Unknown]
  - Cholelithiasis [Unknown]

NARRATIVE: CASE EVENT DATE: 20170701
